FAERS Safety Report 5920204-6 (Version None)
Quarter: 2008Q4

REPORT INFORMATION
  Report Type: 
  Country: None (occurrence: None)
  Receive Date: 20081016
  Receipt Date: 20071105
  Transmission Date: 20090506
  Serious: No
  Sender: FDA-Public Use
  Company Number: A0688012A

PATIENT
  Age: 16 Year
  Sex: Female

DRUGS (4)
  1. CEFTIN [Suspect]
     Dosage: 250MG PER DAY
     Route: 048
     Dates: start: 20051001
  2. TETRACYCLINE [Concomitant]
  3. UNKNOWN MEDICATION [Concomitant]
     Route: 061
  4. MULTIVITAMINS WITH ZINC [Concomitant]

REACTIONS (1)
  - BONE DENSITY DECREASED [None]
